FAERS Safety Report 20333537 (Version 1)
Quarter: 2022Q1

REPORT INFORMATION
  Report Type: Spontaneous
  Country: US (occurrence: US)
  Receive Date: 20220113
  Receipt Date: 20220113
  Transmission Date: 20220423
  Serious: No
  Sender: FDA-Public Use
  Company Number: US-LANNETT COMPANY, INC.-US-2021LAN000035

PATIENT
  Sex: Male

DRUGS (1)
  1. PRIMIDONE [Suspect]
     Active Substance: PRIMIDONE
     Indication: Drooling
     Dosage: 100 MG, QD BEFORE BED
     Route: 065
     Dates: start: 2020

REACTIONS (6)
  - Nervousness [Unknown]
  - Skin lesion [Unknown]
  - Dizziness [Unknown]
  - Anxiety [Unknown]
  - Somnolence [Unknown]
  - Off label use [Unknown]
